FAERS Safety Report 4383362-3 (Version None)
Quarter: 2004Q2

REPORT INFORMATION
  Report Type: 
  Country: None (occurrence: None)
  Receive Date: 20040618
  Receipt Date: 20040604
  Transmission Date: 20050107
  Serious: Yes (Death)
  Sender: FDA-Public Use
  Company Number: JP-JNJFOC-20040601397

PATIENT
  Age: 79 Year
  Sex: Male

DRUGS (7)
  1. FENTANYL [Suspect]
     Indication: CANCER PAIN
     Dosage: 2.5 MG, 1 IN 72 HOUR, TRANSDERMAL
     Route: 062
     Dates: start: 20040531, end: 20040531
  2. PLAUNOTOL (PLAUNOTOL) [Concomitant]
  3. TULOBUTEROL (TULOBUTEROL) [Concomitant]
  4. PROCHLORPERAZINE MALEATE (PROCHLORPERAZINE MALEATE) [Concomitant]
  5. FAMOTIDINE [Concomitant]
  6. PREDNISOLONE [Concomitant]
  7. CLARITHROMYCIN [Concomitant]

REACTIONS (1)
  - RECTAL CANCER [None]
